FAERS Safety Report 12484764 (Version 1)
Quarter: 2016Q2

REPORT INFORMATION
  Report Type: Report from Study
  Country: US (occurrence: US)
  Receive Date: 20160621
  Receipt Date: 20160621
  Transmission Date: 20160815
  Serious: Yes (Death, Hospitalization)
  Sender: FDA-Public Use
  Company Number: US-BIOGEN-2016BI00252618

PATIENT
  Age: 68 Year
  Sex: Male

DRUGS (1)
  1. TYSABRI [Suspect]
     Active Substance: NATALIZUMAB
     Indication: MULTIPLE SCLEROSIS
     Route: 042
     Dates: start: 20120516, end: 20160316

REACTIONS (3)
  - Infection [Fatal]
  - Cystitis [Fatal]
  - Multiple sclerosis relapse [Fatal]

NARRATIVE: CASE EVENT DATE: 20160430
